FAERS Safety Report 5227514-9 (Version None)
Quarter: 2007Q1

REPORT INFORMATION
  Report Type: 
  Country: None (occurrence: None)
  Receive Date: 20070202
  Receipt Date: 20070123
  Transmission Date: 20070707
  Serious: Yes (Other)
  Sender: FDA-Public Use
  Company Number: JP-SANOFI-SYNTHELABO-A01200700429

PATIENT
  Age: 53 Year
  Sex: Female
  Weight: 38.5 kg

DRUGS (12)
  1. SPIRIVA [Concomitant]
     Indication: DRUG USE FOR UNKNOWN INDICATION
     Dosage: UNK
     Route: 055
  2. BONALON [Concomitant]
     Indication: DRUG USE FOR UNKNOWN INDICATION
     Dosage: 5 MG
     Route: 048
  3. MUCODYNE [Concomitant]
     Indication: DRUG USE FOR UNKNOWN INDICATION
     Dosage: 750 MG
     Route: 048
  4. UNIPHYL [Concomitant]
     Indication: DRUG USE FOR UNKNOWN INDICATION
     Dosage: 400 MG
     Route: 048
  5. PARIET [Concomitant]
     Indication: DRUG USE FOR UNKNOWN INDICATION
     Dosage: 10 MG
     Route: 048
  6. PREDONINE [Concomitant]
     Indication: OBLITERATIVE BRONCHIOLITIS
     Dosage: 10 MG
     Route: 048
  7. DEPROMEL [Concomitant]
     Indication: DEPRESSION
     Dosage: 100 MG
     Route: 048
     Dates: start: 20051209
  8. MEILAX [Concomitant]
     Indication: DEPRESSION
     Dosage: 1 MG
     Route: 048
     Dates: start: 20051209
  9. MYSLEE [Suspect]
     Indication: INSOMNIA
     Route: 048
     Dates: start: 20050831, end: 20061207
  10. MYSLEE [Suspect]
     Route: 048
     Dates: start: 20061207, end: 20061221
  11. FLUTIDE [Concomitant]
     Indication: DRUG USE FOR UNKNOWN INDICATION
     Dosage: UNK
     Route: 055
  12. DESYREL [Concomitant]
     Indication: DRUG USE FOR UNKNOWN INDICATION
     Dosage: 25 MG
     Route: 048
     Dates: start: 20060105

REACTIONS (2)
  - DELIRIUM [None]
  - DISORIENTATION [None]
